FAERS Safety Report 19606148 (Version 2)
Quarter: 2021Q3

REPORT INFORMATION
  Report Type: Spontaneous
  Country: CA (occurrence: CA)
  Receive Date: 20210723
  Receipt Date: 20210907
  Transmission Date: 20211014
  Serious: Yes (Other)
  Sender: FDA-Public Use
  Company Number: CA-AMGEN-CANSP2021112998

PATIENT
  Age: 49 Year
  Sex: Female

DRUGS (1)
  1. ENBREL [Suspect]
     Active Substance: ETANERCEPT
     Indication: PRODUCT USED FOR UNKNOWN INDICATION
     Dosage: 1 DF 3 INJECTIONS, DOSED Q WEEKLY
     Route: 065
     Dates: start: 2019, end: 2019

REACTIONS (2)
  - Sinus disorder [Unknown]
  - Injection site reaction [Unknown]

NARRATIVE: CASE EVENT DATE: 2019
